FAERS Safety Report 18951524 (Version 1)
Quarter: 2021Q1

REPORT INFORMATION
  Report Type: Report from Study
  Country: None (occurrence: US)
  Receive Date: 20210301
  Receipt Date: 20210301
  Transmission Date: 20210420
  Serious: Yes (Hospitalization, Other)
  Sender: FDA-Public Use
  Company Number: US-ABBVIE-21K-163-3793107-00

PATIENT
  Age: 74 Year
  Sex: Female
  Weight: 47.22 kg

DRUGS (2)
  1. CREON [Suspect]
     Active Substance: PANCRELIPASE AMYLASE\PANCRELIPASE LIPASE\PANCRELIPASE PROTEASE
     Dosage: 3 CAPSULE WITH MEALS
     Route: 048
     Dates: start: 202101
  2. CREON [Suspect]
     Active Substance: PANCRELIPASE AMYLASE\PANCRELIPASE LIPASE\PANCRELIPASE PROTEASE
     Indication: PANCREATIC FAILURE
     Dosage: 3 CAPSULE WITH MEALS
     Route: 048
     Dates: start: 201906, end: 202006

REACTIONS (9)
  - Frustration tolerance decreased [Not Recovered/Not Resolved]
  - Fluid retention [Unknown]
  - Haemoglobin abnormal [Not Recovered/Not Resolved]
  - Portal vein thrombosis [Not Recovered/Not Resolved]
  - Pain [Unknown]
  - Diarrhoea [Recovered/Resolved]
  - Haemoglobin abnormal [Not Recovered/Not Resolved]
  - Haemoglobin abnormal [Not Recovered/Not Resolved]
  - Asthenia [Not Recovered/Not Resolved]

NARRATIVE: CASE EVENT DATE: 202006
